FAERS Safety Report 8076539-7 (Version None)
Quarter: 2011Q4

REPORT INFORMATION
  Report Type: 
  Country: None (occurrence: None)
  Receive Date: 20111221
  Receipt Date: 20110408
  Transmission Date: 20120403
  Serious: Yes (Other)
  Sender: FDA-Public Use
  Company Number: PHHY2010US27660

PATIENT
  Age: 76 Year
  Sex: Male
  Weight: 67.1 kg

DRUGS (2)
  1. EXJADE [Suspect]
     Indication: HAEMATOPOIETIC NEOPLASM
     Dosage: 1000 MG, QD, ORAL 500 MG, QD, ORAL
     Route: 048
  2. EXJADE [Suspect]
     Indication: LYMPHATIC SYSTEM NEOPLASM
     Dosage: 1000 MG, QD, ORAL 500 MG, QD, ORAL
     Route: 048

REACTIONS (3)
  - SERUM FERRITIN INCREASED [None]
  - OVERDOSE [None]
  - RENAL FAILURE [None]
